FAERS Safety Report 18894085 (Version 2)
Quarter: 2022Q3

REPORT INFORMATION
  Report Type: Spontaneous
  Country: US (occurrence: US)
  Receive Date: 20210215
  Receipt Date: 20220728
  Transmission Date: 20221027
  Serious: Yes (Other)
  Sender: FDA-Public Use
  Company Number: US-PFIZER INC-2021105946

PATIENT
  Age: 23 Year
  Sex: Male

DRUGS (2)
  1. VIAGRA [Interacting]
     Active Substance: SILDENAFIL CITRATE
     Indication: Erectile dysfunction
     Dosage: UNK
  2. MOTRIN [Interacting]
     Active Substance: IBUPROFEN
     Dosage: UNK

REACTIONS (4)
  - Drug interaction [Unknown]
  - Dysuria [Unknown]
  - Blood urine present [Unknown]
  - Penis disorder [Unknown]
